FAERS Safety Report 19493978 (Version 4)
Quarter: 2021Q3

REPORT INFORMATION
  Report Type: Report from Study
  Country: US (occurrence: US)
  Receive Date: 20210706
  Receipt Date: 20210806
  Transmission Date: 20211014
  Serious: Yes (Death, Life-Threatening, Hospitalization, Other)
  Sender: FDA-Public Use
  Company Number: US-BRISTOL-MYERS SQUIBB COMPANY-BMS-2021-065149

PATIENT
  Age: 70 Year
  Sex: Male
  Weight: 72.7 kg

DRUGS (8)
  1. TACROLIMUS. [Suspect]
     Active Substance: TACROLIMUS
     Dosage: 4 MILLIGRAM
     Route: 048
     Dates: end: 20210630
  2. HEPARIN [Concomitant]
     Active Substance: HEPARIN SODIUM
     Indication: PRODUCT USED FOR UNKNOWN INDICATION
     Route: 065
  3. NIVOLUMAB [Suspect]
     Active Substance: NIVOLUMAB
     Indication: MALIGNANT MELANOMA
     Dosage: 480 MILLIGRAM
     Route: 042
     Dates: start: 20210326, end: 20210527
  4. PREDNISONE. [Suspect]
     Active Substance: PREDNISONE
     Dosage: 10 MILLIGRAM
     Route: 048
     Dates: end: 20210630
  5. PREDNISONE. [Suspect]
     Active Substance: PREDNISONE
     Indication: MALIGNANT MELANOMA
     Dosage: 80 MILLIGRAM
     Route: 048
     Dates: end: 20210610
  6. TACROLIMUS. [Suspect]
     Active Substance: TACROLIMUS
     Indication: MALIGNANT MELANOMA
     Dosage: 32 MILLIGRAM
     Route: 048
     Dates: start: 20210527, end: 20210610
  7. NIVOLUMAB [Suspect]
     Active Substance: NIVOLUMAB
     Dosage: 205.2 MILLIGRAM
     Route: 042
     Dates: end: 20210629
  8. IPILIMUMAB [Suspect]
     Active Substance: IPILIMUMAB
     Indication: MALIGNANT MELANOMA
     Dosage: 68.4 MILLIGRAM
     Route: 042
     Dates: start: 20210527, end: 20210629

REACTIONS (7)
  - Malignant neoplasm progression [Fatal]
  - Acute myocardial infarction [Unknown]
  - Sepsis [Unknown]
  - Lactic acidosis [Unknown]
  - Angina pectoris [Recovering/Resolving]
  - Acute kidney injury [Recovering/Resolving]
  - Troponin I increased [Recovering/Resolving]

NARRATIVE: CASE EVENT DATE: 20210527
